FAERS Safety Report 8472756-2 (Version None)
Quarter: 2012Q2

REPORT INFORMATION
  Report Type: 
  Country: None (occurrence: None)
  Receive Date: 20120627
  Receipt Date: 20120625
  Transmission Date: 20120825
  Serious: Yes (Other)
  Sender: FDA-Public Use
  Company Number: PHHY2012GB054152

PATIENT
  Age: 63 Year
  Sex: Female

DRUGS (6)
  1. ASPIRIN [Concomitant]
     Dosage: 75 MG, UNK
     Route: 048
  2. ATENOLOL [Concomitant]
     Dosage: 50 MG, UNK
     Route: 048
  3. SIMVASTATIN [Suspect]
     Dosage: 40 MG, UNK
     Route: 048
     Dates: start: 20100128
  4. RAMIPRIL [Concomitant]
     Indication: HYPERTENSION
     Dosage: 10 MG, UNK
     Route: 048
  5. BENDROFLUAZIDE [Concomitant]
     Dosage: 2.5 MG, UNK
     Route: 048
  6. METFORMIN HCL [Concomitant]
     Indication: DIABETES MELLITUS
     Dosage: 40 MG, UNK
     Route: 048

REACTIONS (1)
  - PALPITATIONS [None]
